FAERS Safety Report 16387287 (Version 2)
Quarter: 2019Q2

REPORT INFORMATION
  Report Type: Report from Study
  Country: DO (occurrence: DO)
  Receive Date: 20190604
  Receipt Date: 20190619
  Transmission Date: 20190711
  Serious: Yes (Other)
  Sender: FDA-Public Use
  Company Number: PHHY2019DO120121

PATIENT
  Age: 66 Year
  Sex: Female

DRUGS (5)
  1. VYMADA [Suspect]
     Active Substance: SACUBITRIL\VALSARTAN
     Indication: PRODUCT USED FOR UNKNOWN INDICATION
     Dosage: 1 DF, QD (24 MG OF SACUBITRIL, 26 MG OF VALSARTAN)
     Route: 065
     Dates: start: 201903
  2. VYMADA [Suspect]
     Active Substance: SACUBITRIL\VALSARTAN
     Dosage: 1 DF, QD (49 MG OF SACUBITRIL, 51 MG OF VALSARTAN)
     Route: 065
  3. VYMADA [Suspect]
     Active Substance: SACUBITRIL\VALSARTAN
     Dosage: 0.5 MG (200 MG, HALF TABLET), BID
     Route: 065
     Dates: start: 201904
  4. COMBIVENT [Concomitant]
     Active Substance: ALBUTEROL SULFATE\IPRATROPIUM BROMIDE
     Indication: ASTHMATIC CRISIS
     Dosage: 0.5/3MG
     Route: 065
     Dates: end: 201902
  5. SYMBICORT [Concomitant]
     Active Substance: BUDESONIDE\FORMOTEROL FUMARATE DIHYDRATE
     Indication: ASTHMA
     Route: 065

REACTIONS (5)
  - Cardiac failure [Unknown]
  - Wrong technique in product usage process [Unknown]
  - Prescribed underdose [Unknown]
  - Cognitive disorder [Unknown]
  - Hypertension [Unknown]

NARRATIVE: CASE EVENT DATE: 201903
